FAERS Safety Report 4919152-X (Version None)
Quarter: 2006Q1

REPORT INFORMATION
  Report Type: 
  Country: None (occurrence: None)
  Receive Date: 20060222
  Receipt Date: 20060213
  Transmission Date: 20060701
  Serious: Yes (Hospitalization)
  Sender: FDA-Public Use
  Company Number: US-AVENTIS-200611606US

PATIENT

DRUGS (2)
  1. LANTUS [Suspect]
     Dosage: DOSE: UNKNOWN
     Route: 051
  2. OPTICLIK (INSULIN INJECTION PEN) [Suspect]

REACTIONS (3)
  - HOSPITALISATION [None]
  - PHARMACEUTICAL PRODUCT COMPLAINT [None]
  - UNEVALUABLE EVENT [None]
